FAERS Safety Report 21238246 (Version 1)
Quarter: 2022Q3

REPORT INFORMATION
  Report Type: Spontaneous
  Country: AU (occurrence: AU)
  Receive Date: 20220822
  Receipt Date: 20220822
  Transmission Date: 20221026
  Serious: No
  Sender: FDA-Public Use
  Company Number: AU-LUPIN PHARMACEUTICALS INC.-2022-10363

PATIENT
  Age: 32 Year
  Sex: Female

DRUGS (5)
  1. CEPHALEXIN [Suspect]
     Active Substance: CEPHALEXIN
     Indication: Mastitis
     Dosage: UNK
     Route: 048
     Dates: start: 20210720, end: 20210723
  2. CETIRIZINE [Suspect]
     Active Substance: CETIRIZINE HYDROCHLORIDE
     Indication: Pruritus
     Dosage: UNK
     Route: 048
     Dates: start: 20210723, end: 20210727
  3. FLUCONAZOLE [Suspect]
     Active Substance: FLUCONAZOLE
     Indication: Fungal infection
     Dosage: UNK
     Route: 048
     Dates: start: 20210723, end: 20210727
  4. METHYLPREDNISOLONE ACEPONATE [Concomitant]
     Active Substance: METHYLPREDNISOLONE ACEPONATE
     Indication: Pruritus
     Dosage: UNK
     Route: 061
     Dates: start: 20210719, end: 20210722
  5. MICONAZOLE NITRATE [Concomitant]
     Active Substance: MICONAZOLE NITRATE
     Indication: Fungal infection
     Dosage: UNK
     Route: 061

REACTIONS (2)
  - Blister [Recovered/Resolved]
  - Drug ineffective [Unknown]
